FAERS Safety Report 8166943-0 (Version None)
Quarter: 2012Q1

REPORT INFORMATION
  Report Type: 
  Country: None (occurrence: None)
  Receive Date: 20120103
  Receipt Date: 20111023
  Transmission Date: 20120608
  Serious: No
  Sender: FDA-Public Use
  Company Number: AE-2011-002589

PATIENT
  Age: 50 Year
  Sex: Female
  Weight: 48.5349 kg

DRUGS (4)
  1. RIBAPAK (RIBAVIRIN) [Concomitant]
  2. VALIUM [Concomitant]
  3. INCIVEK [Suspect]
     Dosage: 2250 MG (750 MG,3 IN 1 D),ORAL
     Route: 048
     Dates: start: 20111001
  4. PEGASYS [Concomitant]

REACTIONS (7)
  - HEADACHE [None]
  - PRURITUS [None]
  - INSOMNIA [None]
  - ERYTHEMA [None]
  - MYALGIA [None]
  - ARTHRALGIA [None]
  - INFLUENZA LIKE ILLNESS [None]
